FAERS Safety Report 24922851 (Version 3)
Quarter: 2025Q1

REPORT INFORMATION
  Report Type: Spontaneous
  Country: CH (occurrence: CH)
  Receive Date: 20250204
  Receipt Date: 20250225
  Transmission Date: 20250409
  Serious: Yes (Hospitalization)
  Sender: PFIZER
  Company Number: CH-PFIZER INC-202500006326

PATIENT
  Age: 76 Year
  Sex: Male
  Weight: 82 kg

DRUGS (8)
  1. VYNDAQEL [Interacting]
     Active Substance: TAFAMIDIS MEGLUMINE
     Indication: Amyloidosis
     Dosage: 61 MG, 1X/DAY (19 CAPSULES IN 19 DAYS)
     Route: 048
     Dates: start: 20241116, end: 20241204
  2. ROSUVASTATIN [Interacting]
     Active Substance: ROSUVASTATIN
     Indication: Blood cholesterol increased
     Dosage: 10-20 MG, 1XDAY
     Route: 048
     Dates: start: 2015
  3. ACETAMINOPHEN\ASCORBIC ACID [Concomitant]
     Active Substance: ACETAMINOPHEN\ASCORBIC ACID
     Dosage: 100 MG, 1X/DAY
  4. METFORMIN HYDROCHLORIDE [Concomitant]
     Active Substance: METFORMIN HYDROCHLORIDE
     Indication: Diabetes mellitus
     Dosage: 1500 MG, 2X/DAY
  5. EZETIMIBE [Concomitant]
     Active Substance: EZETIMIBE
  6. DAFALGAN [Concomitant]
     Active Substance: ACETAMINOPHEN
  7. NOVALGIN (METAMIZOLE SODIUM) [Concomitant]
     Active Substance: METAMIZOLE SODIUM
  8. CANDESARTAN [Concomitant]
     Active Substance: CANDESARTAN
     Indication: Hypertension
     Dosage: 16 MG, 1X/DAY

REACTIONS (13)
  - Drug interaction [Recovered/Resolved]
  - Osteoarthritis [Recovered/Resolved]
  - Inflammation [Recovered/Resolved]
  - Chills [Recovered/Resolved]
  - Pyrexia [Recovered/Resolved]
  - Joint range of motion decreased [Recovered/Resolved]
  - Decreased appetite [Unknown]
  - Yellow skin [Unknown]
  - Hypokinesia [Unknown]
  - Personality change [Unknown]
  - Myalgia [Unknown]
  - Musculoskeletal stiffness [Unknown]
  - Overdose [Unknown]

NARRATIVE: CASE EVENT DATE: 20241116
